FAERS Safety Report 8611300-3 (Version None)
Quarter: 2012Q3

REPORT INFORMATION
  Report Type: 
  Country: None (occurrence: None)
  Receive Date: 20120822
  Receipt Date: 20120809
  Transmission Date: 20120928
  Serious: Yes (Life-Threatening, Other)
  Sender: FDA-Public Use
  Company Number: GB-BAUSCH-BL-2012-000391

PATIENT
  Sex: Female
  Weight: 2 kg

DRUGS (1)
  1. CYCLOPENTOLATE [Suspect]
     Indication: INVESTIGATION
     Route: 047
     Dates: start: 20120627, end: 20120627

REACTIONS (3)
  - ABDOMINAL DISTENSION [None]
  - CIRCULATORY COLLAPSE [None]
  - APNOEA [None]
